FAERS Safety Report 18943414 (Version 1)
Quarter: 2021Q1

REPORT INFORMATION
  Report Type: Spontaneous
  Country: PT (occurrence: PT)
  Receive Date: 20210226
  Receipt Date: 20210226
  Transmission Date: 20210420
  Serious: Yes (Death, Life-Threatening, Hospitalization, Other)
  Sender: FDA-Public Use
  Company Number: PT-ALKEM LABORATORIES LIMITED-PT-ALKEM-2021-00903

PATIENT
  Age: 75 Year
  Sex: Female

DRUGS (5)
  1. TACROLIMUS. [Suspect]
     Active Substance: TACROLIMUS
     Dosage: UNK
     Route: 065
     Dates: start: 2019
  2. MYCOPHENOLATE MOFETIL. [Suspect]
     Active Substance: MYCOPHENOLATE MOFETIL
     Indication: IMMUNOSUPPRESSION
     Dosage: 500 MILLIGRAM, QD
     Route: 065
     Dates: start: 2010, end: 2019
  3. PREDNISOLONE. [Suspect]
     Active Substance: PREDNISOLONE
     Indication: IMMUNOSUPPRESSION
     Dosage: 5 MILLIGRAM
     Route: 065
     Dates: start: 2010
  4. THYMOGLOBULIN [Suspect]
     Active Substance: LAPINE T-LYMPHOCYTE IMMUNE GLOBULIN
     Indication: IMMUNOSUPPRESSION
     Dosage: UNK
     Route: 065
     Dates: start: 2010
  5. TACROLIMUS. [Suspect]
     Active Substance: TACROLIMUS
     Indication: IMMUNOSUPPRESSION
     Dosage: UNK
     Route: 065
     Dates: start: 2010, end: 2019

REACTIONS (9)
  - Mucocutaneous leishmaniasis [Fatal]
  - Visceral leishmaniasis [Fatal]
  - Pancytopenia [Unknown]
  - Pseudomonal bacteraemia [Unknown]
  - Oral herpes [Unknown]
  - Cachexia [Fatal]
  - Epstein-Barr virus infection [Unknown]
  - Serratia bacteraemia [Unknown]
  - Cutaneous leishmaniasis [Fatal]

NARRATIVE: CASE EVENT DATE: 2017
